FAERS Safety Report 11426785 (Version 1)
Quarter: 2015Q3

REPORT INFORMATION
  Report Type: Spontaneous
  Country: US (occurrence: US)
  Receive Date: 20150821
  Receipt Date: 20150821
  Transmission Date: 20151125
  Serious: No
  Sender: FDA-Public Use
  Company Number: US-ELI_LILLY_AND_COMPANY-US201007007218

PATIENT
  Sex: Female

DRUGS (1)
  1. HUMULIN N [Suspect]
     Active Substance: INSULIN HUMAN
     Indication: GESTATIONAL DIABETES
     Dosage: 35 U, DAILY (1/D)
     Dates: start: 20100721, end: 20100727

REACTIONS (4)
  - Exposure during pregnancy [Unknown]
  - Skin exfoliation [Unknown]
  - Blood blister [Unknown]
  - Injection site urticaria [Unknown]
